FAERS Safety Report 9814523 (Version 1)
Quarter: 2014Q1

REPORT INFORMATION
  Report Type: Spontaneous
  Country: US (occurrence: US)
  Receive Date: 20140113
  Receipt Date: 20140113
  Transmission Date: 20141002
  Serious: No
  Sender: FDA-Public Use
  Company Number: US-BIOGENIDEC-2014BI000040

PATIENT
  Age: 48 Year
  Sex: Female
  Weight: 86 kg

DRUGS (7)
  1. TECFIDERA [Suspect]
     Indication: PRODUCT USED FOR UNKNOWN INDICATION
     Route: 048
  2. TECFIDERA [Suspect]
     Indication: PRODUCT USED FOR UNKNOWN INDICATION
     Route: 048
  3. METOPROLOL ER [Concomitant]
  4. GABAPENTIN [Concomitant]
  5. TOPAMAX [Concomitant]
  6. PROVIGIL [Concomitant]
  7. ALEVE [Concomitant]

REACTIONS (2)
  - Depressed mood [Unknown]
  - Decreased interest [Unknown]
